FAERS Safety Report 20850257 (Version 5)
Quarter: 2022Q3

REPORT INFORMATION
  Report Type: Report from Study
  Country: CN (occurrence: None)
  Receive Date: 20220519
  Receipt Date: 20220804
  Transmission Date: 20221027
  Serious: Yes (Hospitalization)
  Sender: FDA-Public Use
  Company Number: CN-ROCHE-3097140

PATIENT
  Age: 76 Year
  Sex: Male
  Weight: 47 kg

DRUGS (3)
  1. TIRAGOLUMAB [Suspect]
     Active Substance: TIRAGOLUMAB
     Indication: Non-small cell lung cancer stage III
     Dosage: DOSE LAST TIRAGOLUMAB ADMIN PRIOR AE IS 840 MG?START DATE OF MOST RECENT DOSE OF TIRAGOLUMAB PRIOR T
     Route: 042
     Dates: start: 20220224
  2. ATEZOLIZUMAB [Suspect]
     Active Substance: ATEZOLIZUMAB
     Indication: Non-small cell lung cancer stage III
     Dosage: DOSE LAST ATEZOLIZUMAB ADMIN PRIOR AE IS 1680 MG?DATE OF MOST RECENT DOSE OF ATEZOLIZUMAB  PRIOR TO
     Route: 042
     Dates: start: 20220224
  3. METOPROLOL [Concomitant]
     Active Substance: METOPROLOL
     Route: 048

REACTIONS (1)
  - Pneumonitis [Not Recovered/Not Resolved]

NARRATIVE: CASE EVENT DATE: 20220422
